FAERS Safety Report 13124019 (Version 1)
Quarter: 2017Q1

REPORT INFORMATION
  Report Type: Spontaneous
  Country: US (occurrence: US)
  Receive Date: 20170118
  Receipt Date: 20170118
  Transmission Date: 20170428
  Serious: Yes (Hospitalization)
  Sender: FDA-Public Use
  Company Number: US-ASTRAZENECA-2017SE04092

PATIENT

DRUGS (11)
  1. DABIGATRAN [Concomitant]
     Active Substance: DABIGATRAN
  2. APIXABAN [Concomitant]
     Active Substance: APIXABAN
  3. AMIODARONE [Concomitant]
     Active Substance: AMIODARONE
  4. METOLAZONE. [Concomitant]
     Active Substance: METOLAZONE
  5. DABIGATRAN [Concomitant]
     Active Substance: DABIGATRAN
  6. GLIPIZIDE. [Concomitant]
     Active Substance: GLIPIZIDE
  7. METOPROLOL SUCCINATE. [Suspect]
     Active Substance: METOPROLOL SUCCINATE
  8. SPIRONOLACTONE. [Concomitant]
     Active Substance: SPIRONOLACTONE
  9. DABIGATRAN [Concomitant]
     Active Substance: DABIGATRAN
  10. OXYCODONE [Concomitant]
     Active Substance: OXYCODONE
  11. DABIGATRAN [Concomitant]
     Active Substance: DABIGATRAN

REACTIONS (1)
  - Cardiac failure [Unknown]
